FAERS Safety Report 14893001 (Version 2)
Quarter: 2018Q2

REPORT INFORMATION
  Report Type: Report from Study
  Country: US (occurrence: US)
  Receive Date: 20180514
  Receipt Date: 20180523
  Transmission Date: 20180711
  Serious: Yes (Other)
  Sender: FDA-Public Use
  Company Number: US-UCBSA-2018019812

PATIENT
  Sex: Male
  Weight: 127 kg

DRUGS (4)
  1. LEVETIRACETAM. [Suspect]
     Active Substance: LEVETIRACETAM
     Indication: SEIZURE
     Dosage: 1500 MG, 2X/DAY (BID)
     Route: 048
  2. DILANTIN [Concomitant]
     Active Substance: PHENYTOIN
     Indication: SEIZURE
     Dosage: 100 MG, 2X/DAY (BID) (1 AM AND 2 PM)
     Route: 048
  3. ESLICARBAZEPINE ACETATE [Concomitant]
     Active Substance: ESLICARBAZEPINE ACETATE
     Indication: SEIZURE
     Dosage: 800 MG, 2X/DAY (BID)
     Route: 048
  4. LAMICTAL [Concomitant]
     Active Substance: LAMOTRIGINE
     Indication: SEIZURE
     Dosage: 200 MG, 2X/DAY (BID)
     Route: 048

REACTIONS (1)
  - Exostosis [Recovering/Resolving]
